FAERS Safety Report 8897654 (Version 1)
Quarter: 2012Q4

REPORT INFORMATION
  Report Type: Spontaneous
  Country: US (occurrence: None)
  Receive Date: 20121106
  Receipt Date: 20121106
  Transmission Date: 20130627
  Serious: Yes (Hospitalization, Other)
  Sender: FDA-Public Use
  Company Number: IPC201210-000559

PATIENT
  Age: 73 Year
  Sex: Female
  Weight: 81.65 kg

DRUGS (10)
  1. PROPRANOLOL HYDROCHLORIDE [Suspect]
     Indication: BLOOD PRESSURE HIGH
     Dosage: 20 mg morning + evening; 40 mg afternoon
     Route: 048
     Dates: start: 2007, end: 201208
  2. PROPRANOLOL HYDROCHLORIDE [Suspect]
     Indication: HEADACHE
     Dosage: 20 mg morning + evening; 40 mg afternoon
     Route: 048
     Dates: start: 2007, end: 201208
  3. PROPRANOLOL [Suspect]
     Indication: BLOOD PRESSURE HIGH
     Dosage: 20 mg tablets, three times a day, Oral
     Route: 048
     Dates: end: 2007
  4. PROPRANOLOL [Suspect]
     Indication: HEADACHE
     Dosage: 20 mg tablets, three times a day, Oral
     Route: 048
     Dates: end: 2007
  5. CITALOPRAM [Suspect]
     Indication: ANXIETY
  6. POTASSIUM [Suspect]
  7. PROPRANOLOL [Suspect]
     Indication: BLOOD PRESSURE HIGH
     Dosage: 20 mg morning + evening, 40 mg afternoon
     Route: 048
     Dates: start: 201208
  8. PROPRANOLOL [Suspect]
     Indication: HEADACHE
     Dosage: 20 mg morning + evening, 40 mg afternoon
     Route: 048
     Dates: start: 201208
  9. PREMARIN (ESTROGENS CONJUGATED) [Concomitant]
  10. LEVOXYL (LEVOTHYROXINE) [Concomitant]

REACTIONS (13)
  - Anxiety [None]
  - Oral discomfort [None]
  - Gastrooesophageal reflux disease [None]
  - Large intestine polyp [None]
  - Myocardial infarction [None]
  - Arthralgia [None]
  - Abdominal distension [None]
  - Weight increased [None]
  - Insomnia [None]
  - Dysgeusia [None]
  - Abdominal discomfort [None]
  - Precancerous cells present [None]
  - Limb discomfort [None]
